FAERS Safety Report 7329833-9 (Version None)
Quarter: 2011Q1

REPORT INFORMATION
  Report Type: 
  Country: None (occurrence: None)
  Receive Date: 20110303
  Receipt Date: 20110218
  Transmission Date: 20110831
  Serious: Yes (Other)
  Sender: FDA-Public Use
  Company Number: CA-ELI_LILLY_AND_COMPANY-CA201102005887

PATIENT
  Sex: Female

DRUGS (2)
  1. CYMBALTA [Suspect]
     Indication: ANXIETY
     Dosage: 30 MG, DAILY (1/D)
  2. CYMBALTA [Suspect]
     Dosage: 60 MG, DAILY (1/D)
     Dates: end: 20110201

REACTIONS (11)
  - DRUG WITHDRAWAL SYNDROME [None]
  - VISION BLURRED [None]
  - VISUAL IMPAIRMENT [None]
  - PARAESTHESIA [None]
  - SYNCOPE [None]
  - STRESS [None]
  - VOMITING [None]
  - BALANCE DISORDER [None]
  - DIZZINESS [None]
  - HEADACHE [None]
  - DRUG EXPOSURE DURING PREGNANCY [None]
